FAERS Safety Report 22297573 (Version 1)
Quarter: 2023Q2

REPORT INFORMATION
  Report Type: Spontaneous
  Country: IT (occurrence: IT)
  Receive Date: 20230509
  Receipt Date: 20230509
  Transmission Date: 20230722
  Serious: Yes (Other)
  Sender: FDA-Public Use
  Company Number: IT-CELLTRION INC.-2023IT006308

PATIENT

DRUGS (13)
  1. RITUXIMAB [Suspect]
     Active Substance: RITUXIMAB
     Indication: Diffuse large B-cell lymphoma
     Dosage: 375 MG/M2 ON DAY 1, 6 AND 21 DAYS
     Route: 042
  2. RITUXIMAB [Suspect]
     Active Substance: RITUXIMAB
     Dosage: 375 MG/M2 (SIX COURSE OF R-CHOP-21+2R/ WITH 2 ADDITIONAL ADMINISTRATION EVERY 21 DAYS)
     Route: 042
  3. CYCLOPHOSPHAMIDE [Suspect]
     Active Substance: CYCLOPHOSPHAMIDE
     Indication: Diffuse large B-cell lymphoma
     Dosage: 750 MG/M2
     Route: 042
  4. DOXORUBICIN [Suspect]
     Active Substance: DOXORUBICIN
     Indication: Diffuse large B-cell lymphoma
     Dosage: 50 MG/M2
     Route: 042
  5. DOXORUBICIN [Suspect]
     Active Substance: DOXORUBICIN
     Indication: Diffuse large B-cell lymphoma stage II
  6. VINCRISTINE [Suspect]
     Active Substance: VINCRISTINE
     Indication: Diffuse large B-cell lymphoma
     Dosage: 1.4 MG/M2, MAXIMUM DOSE 2 MG
     Route: 042
  7. VINCRISTINE [Suspect]
     Active Substance: VINCRISTINE
     Indication: Diffuse large B-cell lymphoma stage II
  8. PREDNISONE [Suspect]
     Active Substance: PREDNISONE
     Indication: Diffuse large B-cell lymphoma
     Dosage: 100 MG ON DAYS 1-5, ADMINISTERED EVERY 21 DAYS
     Route: 048
  9. PREDNISONE [Suspect]
     Active Substance: PREDNISONE
     Indication: Diffuse large B-cell lymphoma stage II
  10. LAMIVUDINE [Suspect]
     Active Substance: LAMIVUDINE
     Indication: Antiviral prophylaxis
     Dosage: 100 MG (DAILY), STARTING 1 WEEK BEFORE THE R-CHOP-21+2R SCHEME UNTIL 6 MONTHS AFTER THE COMPLETION O
     Route: 048
     Dates: start: 200501, end: 202012
  11. GRANULOCYTE COLONY-STIMULATING FACTOR NOS [Concomitant]
     Active Substance: GRANULOCYTE COLONY-STIMULATING FACTOR NOS
     Indication: Prophylaxis
  12. SULFAMETHOXAZOLE\TRIMETHOPRIM [Concomitant]
     Active Substance: SULFAMETHOXAZOLE\TRIMETHOPRIM
     Indication: Prophylaxis
  13. ACYCLOVIR [Concomitant]
     Active Substance: ACYCLOVIR
     Indication: Prophylaxis

REACTIONS (2)
  - Hepatitis B reactivation [Recovered/Resolved]
  - Drug ineffective [Unknown]
